FAERS Safety Report 7579138-6 (Version None)
Quarter: 2011Q2

REPORT INFORMATION
  Report Type: 
  Country: None (occurrence: None)
  Receive Date: 20110628
  Receipt Date: 20110621
  Transmission Date: 20111010
  Serious: Yes (Death)
  Sender: FDA-Public Use
  Company Number: US-PFIZER INC-2008154025

PATIENT
  Age: 26 Year
  Sex: Female

DRUGS (5)
  1. COCAINE [Suspect]
     Dosage: UNK
     Route: 065
     Dates: end: 20070101
  2. ETHANOL [Suspect]
     Dosage: UNK
     Route: 065
     Dates: end: 20070101
  3. BUPROPION HCL [Suspect]
     Dosage: UNK
     Route: 065
     Dates: end: 20070101
  4. VENLAFAXINE HCL [Suspect]
     Dosage: UNK
     Route: 065
     Dates: end: 20070101
  5. TRAZODONE HCL [Suspect]
     Dosage: UNK
     Route: 065
     Dates: end: 20070101

REACTIONS (3)
  - COMPLETED SUICIDE [None]
  - RESPIRATORY ARREST [None]
  - CARDIAC ARREST [None]
